FAERS Safety Report 6326137-8 (Version None)
Quarter: 2009Q3

REPORT INFORMATION
  Report Type: 
  Country: None (occurrence: None)
  Receive Date: 20090824
  Receipt Date: 20090819
  Transmission Date: 20100115
  Serious: Yes (Death, Hospitalization)
  Sender: FDA-Public Use
  Company Number: PHHY2009CA34973

PATIENT
  Age: 63 Year
  Sex: Male

DRUGS (6)
  1. CLOZAPINE [Suspect]
     Indication: SCHIZOPHRENIA
     Dosage: 50 MG/DAY
  2. CLOZAPINE [Suspect]
     Dosage: 400 MG/DAY
  3. CLOZAPINE [Suspect]
     Dosage: 300 MG/DAY
  4. CLOZAPINE [Suspect]
     Dosage: 400 MG/DAY
  5. GLYBURIDE [Concomitant]
     Dosage: 7.5 MG/DAY
  6. LEVOTHYROXINE SODIUM [Concomitant]
     Dosage: 0.075 MG/DAY

REACTIONS (13)
  - ABDOMINAL COMPARTMENT SYNDROME [None]
  - ABDOMINAL DISTENSION [None]
  - CIRCULATORY COLLAPSE [None]
  - FAECALOMA [None]
  - HYPOTENSION [None]
  - INFERIOR VENA CAVAL OCCLUSION [None]
  - INFREQUENT BOWEL MOVEMENTS [None]
  - INTESTINAL DILATATION [None]
  - INTESTINAL OBSTRUCTION [None]
  - INTRA-ABDOMINAL PRESSURE INCREASED [None]
  - MULTI-ORGAN FAILURE [None]
  - MYOCLONUS [None]
  - SALIVARY HYPERSECRETION [None]
